FAERS Safety Report 8512025 (Version 7)
Quarter: 2013Q2

REPORT INFORMATION
  Report Type: Spontaneous
  Country: US (occurrence: US)
  Receive Date: 20120413
  Receipt Date: 20130611
  Transmission Date: 20140414
  Serious: Yes (Hospitalization)
  Sender: FDA-Public Use
  Company Number: US-ASTRAZENECA-2011SE41375

PATIENT
  Age: 70 Year
  Sex: Female

DRUGS (8)
  1. NEXIUM [Suspect]
     Route: 048
  2. PRILOSEC [Suspect]
     Route: 048
  3. PRILOSEC OTC [Suspect]
     Route: 048
  4. BLADDER MEDICATION [Suspect]
     Indication: BLADDER DISORDER
     Route: 065
  5. PROSED [Concomitant]
  6. LEVAQUIN [Concomitant]
  7. ZANTAC [Concomitant]
  8. URIBEL [Concomitant]

REACTIONS (24)
  - Pain [Unknown]
  - Gastrooesophageal reflux disease [Unknown]
  - Aphagia [Unknown]
  - Gastritis [Unknown]
  - Dysuria [Unknown]
  - Weight decreased [Unknown]
  - Heart rate increased [Unknown]
  - Bladder disorder [Unknown]
  - Urethral spasm [Unknown]
  - Urinary tract infection [Unknown]
  - Feeling abnormal [Unknown]
  - Cystitis [Unknown]
  - Memory impairment [Unknown]
  - Back pain [Unknown]
  - Intervertebral disc protrusion [Unknown]
  - Accident [Unknown]
  - Sinusitis [Unknown]
  - Pharyngeal erythema [Unknown]
  - Renal disorder [Unknown]
  - Dyspepsia [Unknown]
  - Body temperature increased [Unknown]
  - Nervousness [Unknown]
  - Drug dose omission [Unknown]
  - Drug ineffective [Unknown]
